FAERS Safety Report 9526344 (Version 9)
Quarter: 2014Q2

REPORT INFORMATION
  Report Type: Spontaneous
  Country: US (occurrence: US)
  Receive Date: 20130916
  Receipt Date: 20140422
  Transmission Date: 20141212
  Serious: Yes (Hospitalization, Other)
  Sender: FDA-Public Use
  Company Number: US-009507513-1205USA02050

PATIENT
  Sex: Female
  Weight: 53.1 kg

DRUGS (4)
  1. FOSAMAX [Suspect]
     Indication: OSTEOPENIA
     Dosage: UNK
     Route: 048
     Dates: end: 20050411
  2. FOSAMAX [Suspect]
     Indication: OSTEOPOROSIS
     Dosage: 70 MG, QW
     Route: 048
  3. BONIVA [Suspect]
     Indication: OSTEOPENIA
     Dosage: 150 MG, QM
     Route: 048
     Dates: start: 20070515
  4. BONIVA [Suspect]
     Indication: OSTEOPOROSIS

REACTIONS (35)
  - Intramedullary rod insertion [Unknown]
  - Intramedullary rod insertion [Unknown]
  - Rib fracture [Recovering/Resolving]
  - Pneumonia [Unknown]
  - Femur fracture [Unknown]
  - Femur fracture [Recovered/Resolved with Sequelae]
  - Depression [Unknown]
  - Anxiety [Unknown]
  - Fear of falling [Unknown]
  - Hypothyroidism [Unknown]
  - Endodontic procedure [Unknown]
  - Grief reaction [Unknown]
  - Pancreatic duct dilatation [Unknown]
  - Renal cyst [Unknown]
  - Polycystic liver disease [Unknown]
  - Spinal osteoarthritis [Unknown]
  - Osteoarthritis [Unknown]
  - Neurectomy [Unknown]
  - Blood calcium increased [Unknown]
  - Liver function test abnormal [Unknown]
  - Biliary dilatation [Unknown]
  - Foot fracture [Unknown]
  - Fall [Unknown]
  - Foot deformity [Unknown]
  - Tachycardia [Unknown]
  - Dyspepsia [Unknown]
  - Colitis ulcerative [Unknown]
  - Haematuria [Unknown]
  - Morton^s neuralgia [Unknown]
  - Proctitis ulcerative [Unknown]
  - Joint stiffness [Unknown]
  - Gastrooesophageal reflux disease [Unknown]
  - Abdominal pain [Unknown]
  - Treatment failure [Unknown]
  - Pain in extremity [Unknown]
